FAERS Safety Report 4629880-1 (Version None)
Quarter: 2005Q2

REPORT INFORMATION
  Report Type: 
  Country: None (occurrence: None)
  Receive Date: 20050406
  Receipt Date: 20050317
  Transmission Date: 20051028
  Serious: Yes (Disabling)
  Sender: FDA-Public Use
  Company Number: GBS050316946

PATIENT
  Age: 67 Year
  Sex: Female
  Weight: 119 kg

DRUGS (11)
  1. YENTREVE (DULOXETINE HYDROCHLORIDE) [Suspect]
     Indication: STRESS INCONTINENCE
     Dosage: 40 MG /2 DAY
     Dates: start: 20050201, end: 20050203
  2. ASMABEC (BECLOMETASONE DIPROPIONATE) [Concomitant]
  3. ASMASAL (SALBUTAMOL SULFATE) [Concomitant]
  4. CLOPIDOGREL [Concomitant]
  5. CO-DYDRAMOL [Concomitant]
  6. DOXAZOSIN [Concomitant]
  7. VALSARTAN [Concomitant]
  8. MOXONIDINE [Concomitant]
  9. FRUSEMIDE [Concomitant]
  10. METFORMIN HCL [Concomitant]
  11. RABEPRAZOLE SODIUM [Concomitant]

REACTIONS (4)
  - ASTHENIA [None]
  - DIZZINESS [None]
  - RECTAL TENESMUS [None]
  - VOMITING [None]
